FAERS Safety Report 16598038 (Version 2)
Quarter: 2021Q4

REPORT INFORMATION
  Report Type: Spontaneous
  Country: US (occurrence: US)
  Receive Date: 20190719
  Receipt Date: 20211013
  Transmission Date: 20220303
  Serious: No
  Sender: FDA-Public Use
  Company Number: PHEH2019US029127

PATIENT
  Age: 90 Year
  Sex: Female

DRUGS (1)
  1. NITROFURANTOIN [Suspect]
     Active Substance: NITROFURANTOIN
     Indication: Urinary tract infection
     Dosage: 1 DF, BID
     Route: 048

REACTIONS (2)
  - Product use complaint [Unknown]
  - Product quality issue [Unknown]
